FAERS Safety Report 9266921 (Version 2)
Quarter: 2013Q2

REPORT INFORMATION
  Report Type: Spontaneous
  Country: US (occurrence: US)
  Receive Date: 20130502
  Receipt Date: 20130510
  Transmission Date: 20140414
  Serious: No
  Sender: FDA-Public Use
  Company Number: US-009507513-1305USA000550

PATIENT
  Age: 20 Year
  Sex: Female
  Weight: 40.82 kg

DRUGS (1)
  1. IMPLANON [Suspect]
     Indication: CONTRACEPTION
     Dosage: 1 ROD UP TO 3 YEARS
     Route: 059
     Dates: start: 20111117

REACTIONS (7)
  - Unintended pregnancy [Unknown]
  - Nausea [Unknown]
  - Mood altered [Unknown]
  - Hot flush [Unknown]
  - Depressed mood [Unknown]
  - Flushing [Unknown]
  - Menstruation irregular [Unknown]
